FAERS Safety Report 6289559-X (Version None)
Quarter: 2009Q3

REPORT INFORMATION
  Report Type: 
  Country: None (occurrence: None)
  Receive Date: 20090730
  Receipt Date: 20090724
  Transmission Date: 20100115
  Serious: No
  Sender: FDA-Public Use
  Company Number: US-B.I. PHARMACEUTICALS,INC./RIDGEFIELD-2009-BP-08831BP

PATIENT
  Age: 78 Year
  Sex: Male

DRUGS (3)
  1. FLOMAX [Suspect]
     Indication: BENIGN PROSTATIC HYPERPLASIA
     Dosage: 0.4 MG
     Route: 048
     Dates: start: 20070701
  2. FOSAMAX [Concomitant]
  3. CALCIUM SUPPLEMENT [Concomitant]
     Indication: SUPPLEMENTATION THERAPY

REACTIONS (1)
  - HAEMATOSPERMIA [None]
